FAERS Safety Report 22757092 (Version 17)
Quarter: 2025Q2

REPORT INFORMATION
  Report Type: Spontaneous
  Country: US (occurrence: US)
  Receive Date: 20230727
  Receipt Date: 20250624
  Transmission Date: 20250716
  Serious: Yes (Other)
  Sender: PFIZER
  Company Number: US-PFIZER INC-2020045877

PATIENT
  Age: 76 Year
  Sex: Female
  Weight: 67.13 kg

DRUGS (13)
  1. PREMARIN [Suspect]
     Active Substance: ESTROGENS, CONJUGATED
     Indication: Uterine prolapse
     Route: 067
  2. PREMARIN [Suspect]
     Active Substance: ESTROGENS, CONJUGATED
     Route: 067
  3. PREMARIN [Suspect]
     Active Substance: ESTROGENS, CONJUGATED
     Route: 067
  4. PREMARIN [Suspect]
     Active Substance: ESTROGENS, CONJUGATED
     Route: 067
  5. PREMARIN [Suspect]
     Active Substance: ESTROGENS, CONJUGATED
     Dosage: DIRECTIONS: 0.25 GM VAG M/TH, INSTR: USE TWICE WEEKLY
     Route: 067
  6. PREMARIN [Suspect]
     Active Substance: ESTROGENS, CONJUGATED
     Route: 067
  7. PREMARIN [Suspect]
     Active Substance: ESTROGENS, CONJUGATED
     Route: 067
  8. PREMARIN [Suspect]
     Active Substance: ESTROGENS, CONJUGATED
     Route: 067
  9. PREMARIN [Suspect]
     Active Substance: ESTROGENS, CONJUGATED
     Route: 067
  10. PREMARIN [Suspect]
     Active Substance: ESTROGENS, CONJUGATED
     Dosage: 1 GM VAG M/TH, INSTR: USE TWICE WEEKLY
     Route: 067
  11. PREMARIN [Suspect]
     Active Substance: ESTROGENS, CONJUGATED
  12. METOPROLOL [Concomitant]
     Active Substance: METOPROLOL
     Indication: Hypertension
  13. AMLODIPINE [Concomitant]
     Active Substance: AMLODIPINE BESYLATE
     Indication: Hypertension

REACTIONS (7)
  - Eye infection [Unknown]
  - Eye laser surgery [Unknown]
  - Intraocular pressure increased [Unknown]
  - Malaise [Unknown]
  - Off label use [Unknown]
  - Product prescribing error [Unknown]
  - Expired product administered [Unknown]
